FAERS Safety Report 11831805 (Version 9)
Quarter: 2016Q2

REPORT INFORMATION
  Report Type: Report from Study
  Country: FR (occurrence: FR)
  Receive Date: 20151214
  Receipt Date: 20160526
  Transmission Date: 20160815
  Serious: Yes (Hospitalization)
  Sender: FDA-Public Use
  Company Number: FR-SA-2015SA202679

PATIENT
  Age: 36 Year
  Sex: Female
  Weight: 57 kg

DRUGS (74)
  1. RANITIDINE. [Suspect]
     Active Substance: RANITIDINE
     Route: 048
     Dates: start: 20150107
  2. PARACETAMOL [Suspect]
     Active Substance: ACETAMINOPHEN
     Route: 048
     Dates: start: 20150107
  3. ACICLOVIR [Suspect]
     Active Substance: ACYCLOVIR
     Route: 048
     Dates: start: 20150105
  4. METHYLPREDNISOLONE. [Suspect]
     Active Substance: METHYLPREDNISOLONE
     Route: 042
     Dates: start: 20150105
  5. SINGULAIR [Concomitant]
     Active Substance: MONTELUKAST SODIUM
     Indication: DRUG THERAPY
     Route: 048
     Dates: start: 20150429
  6. MACROGOL [Concomitant]
     Active Substance: POLYETHYLENE GLYCOLS
     Indication: DRUG THERAPY
     Route: 048
     Dates: start: 20150910
  7. SERETIDE [Concomitant]
     Active Substance: FLUTICASONE PROPIONATE\SALMETEROL XINAFOATE
     Indication: PROPHYLAXIS
     Route: 048
     Dates: start: 20141219, end: 20141229
  8. CETIRIZINE [Suspect]
     Active Substance: CETIRIZINE HYDROCHLORIDE
     Route: 048
     Dates: start: 20150110, end: 20150110
  9. ACICLOVIR [Suspect]
     Active Substance: ACYCLOVIR
     Route: 048
     Dates: start: 20150109
  10. POLARAMINE [Suspect]
     Active Substance: DEXCHLORPHENIRAMINE MALEATE
     Route: 042
     Dates: start: 20150109
  11. METHYLPREDNISOLONE. [Suspect]
     Active Substance: METHYLPREDNISOLONE
     Route: 042
     Dates: start: 20150106
  12. SOLU-MEDROL [Suspect]
     Active Substance: METHYLPREDNISOLONE SODIUM SUCCINATE
     Route: 042
     Dates: start: 20150109
  13. EBASTINE [Concomitant]
     Active Substance: EBASTINE
     Indication: DRUG THERAPY
     Route: 048
     Dates: start: 20150704, end: 20151212
  14. SERETIDE [Concomitant]
     Active Substance: FLUTICASONE PROPIONATE\SALMETEROL XINAFOATE
     Indication: PROPHYLAXIS
     Route: 055
     Dates: start: 20150301, end: 20150908
  15. ACETYLCYSTEINE. [Concomitant]
     Active Substance: ACETYLCYSTEINE
     Indication: DRUG THERAPY
     Route: 048
     Dates: start: 20141230, end: 20150103
  16. RANITIDINE. [Suspect]
     Active Substance: RANITIDINE
     Route: 048
     Dates: start: 20150109
  17. PARACETAMOL [Suspect]
     Active Substance: ACETAMINOPHEN
     Route: 048
     Dates: start: 20150105
  18. PARACETAMOL [Suspect]
     Active Substance: ACETAMINOPHEN
     Route: 048
     Dates: start: 20150109
  19. ACICLOVIR [Suspect]
     Active Substance: ACYCLOVIR
     Route: 048
     Dates: start: 20150108
  20. ACICLOVIR [Suspect]
     Active Substance: ACYCLOVIR
     Route: 048
     Dates: start: 20150108
  21. ZOVIRAX [Concomitant]
     Active Substance: ACYCLOVIR
     Indication: PROPHYLAXIS
     Route: 048
     Dates: start: 20151126, end: 20151128
  22. BIOCALYPTOL [Concomitant]
     Active Substance: PHOLCODINE
     Indication: DRUG THERAPY
     Route: 048
     Dates: start: 20141226, end: 20141230
  23. RANITIDINE. [Suspect]
     Active Substance: RANITIDINE
     Route: 048
     Dates: start: 20150105
  24. RANITIDINE. [Suspect]
     Active Substance: RANITIDINE
     Route: 048
     Dates: start: 20150105
  25. ACICLOVIR [Suspect]
     Active Substance: ACYCLOVIR
     Route: 048
     Dates: start: 20150107
  26. ACICLOVIR [Suspect]
     Active Substance: ACYCLOVIR
     Route: 048
     Dates: start: 20150105
  27. POLARAMINE [Suspect]
     Active Substance: DEXCHLORPHENIRAMINE MALEATE
     Route: 042
     Dates: start: 20150106
  28. METHYLPREDNISOLONE. [Suspect]
     Active Substance: METHYLPREDNISOLONE
     Route: 042
     Dates: start: 20150107
  29. OROCAL [Concomitant]
     Active Substance: CALCIUM CARBONATE
     Indication: DRUG THERAPY
     Route: 048
     Dates: start: 20150612, end: 20151211
  30. SYMBICORT [Concomitant]
     Active Substance: BUDESONIDE\FORMOTEROL FUMARATE DIHYDRATE
     Indication: DRUG THERAPY
     Dosage: DOSE:2 PUFF(S)
     Route: 055
     Dates: start: 20150909
  31. CETIRIZINE [Suspect]
     Active Substance: CETIRIZINE HYDROCHLORIDE
     Route: 048
     Dates: start: 20150108
  32. RANITIDINE. [Suspect]
     Active Substance: RANITIDINE
     Route: 048
     Dates: start: 20150107
  33. PARACETAMOL [Suspect]
     Active Substance: ACETAMINOPHEN
     Route: 048
     Dates: start: 20150110, end: 20150114
  34. ACICLOVIR [Suspect]
     Active Substance: ACYCLOVIR
     Route: 048
     Dates: start: 20150106
  35. POLARAMINE [Suspect]
     Active Substance: DEXCHLORPHENIRAMINE MALEATE
     Route: 042
     Dates: start: 20150107
  36. METHYLPREDNISOLONE. [Suspect]
     Active Substance: METHYLPREDNISOLONE
     Route: 042
     Dates: start: 20150108
  37. DOXEPIN [Concomitant]
     Active Substance: DOXEPIN
     Indication: DRUG THERAPY
     Route: 048
     Dates: start: 20120201
  38. ESOMEPRAZOLE [Concomitant]
     Active Substance: ESOMEPRAZOLE
  39. AMOXICILLIN. [Concomitant]
     Active Substance: AMOXICILLIN
     Indication: DRUG THERAPY
     Route: 048
     Dates: start: 20141230, end: 20150103
  40. ALEMTUZUMAB [Suspect]
     Active Substance: ALEMTUZUMAB
     Indication: RELAPSING-REMITTING MULTIPLE SCLEROSIS
     Route: 042
     Dates: start: 20150105, end: 20150109
  41. CETIRIZINE [Suspect]
     Active Substance: CETIRIZINE HYDROCHLORIDE
     Route: 048
     Dates: start: 20150106
  42. CETIRIZINE [Suspect]
     Active Substance: CETIRIZINE HYDROCHLORIDE
     Route: 048
     Dates: start: 20150107
  43. RANITIDINE. [Suspect]
     Active Substance: RANITIDINE
     Route: 048
     Dates: start: 20150108
  44. RANITIDINE. [Suspect]
     Active Substance: RANITIDINE
     Route: 048
     Dates: start: 20150106
  45. RANITIDINE. [Suspect]
     Active Substance: RANITIDINE
     Route: 048
     Dates: start: 20150108
  46. PARACETAMOL [Suspect]
     Active Substance: ACETAMINOPHEN
     Route: 048
     Dates: start: 20150106
  47. PARACETAMOL [Suspect]
     Active Substance: ACETAMINOPHEN
     Route: 048
     Dates: start: 20150108
  48. ACICLOVIR [Suspect]
     Active Substance: ACYCLOVIR
     Route: 048
     Dates: start: 20150107
  49. POLARAMINE [Suspect]
     Active Substance: DEXCHLORPHENIRAMINE MALEATE
     Route: 048
     Dates: start: 20150105
  50. PRAZEPAM [Concomitant]
     Active Substance: PRAZEPAM
     Indication: DRUG THERAPY
     Route: 048
     Dates: start: 20111001
  51. FERO-GRAD [Concomitant]
     Indication: DRUG THERAPY
     Route: 048
     Dates: start: 20150320, end: 20151211
  52. CYCLEANE [Concomitant]
     Active Substance: DESOGESTREL\ETHINYL ESTRADIOL
     Indication: PROPHYLAXIS
     Route: 048
     Dates: start: 20150727
  53. ZOVIRAX [Concomitant]
     Active Substance: ACYCLOVIR
     Indication: PROPHYLAXIS
     Route: 048
     Dates: start: 20151126, end: 20151128
  54. MONTELUKAST [Concomitant]
     Active Substance: MONTELUKAST SODIUM
  55. FORMOTEROL/BUDESONIDE [Concomitant]
  56. CETIRIZINE [Suspect]
     Active Substance: CETIRIZINE HYDROCHLORIDE
     Route: 048
  57. CETIRIZINE [Suspect]
     Active Substance: CETIRIZINE HYDROCHLORIDE
     Route: 048
     Dates: start: 20150105
  58. RANITIDINE. [Suspect]
     Active Substance: RANITIDINE
     Route: 048
     Dates: start: 20150106
  59. RANITIDINE. [Suspect]
     Active Substance: RANITIDINE
     Route: 048
     Dates: start: 20150109
  60. ACICLOVIR [Suspect]
     Active Substance: ACYCLOVIR
     Route: 048
     Dates: start: 20150109
  61. ACICLOVIR [Suspect]
     Active Substance: ACYCLOVIR
     Route: 048
     Dates: start: 20150106
  62. POLARAMINE [Suspect]
     Active Substance: DEXCHLORPHENIRAMINE MALEATE
     Route: 042
     Dates: start: 20150108
  63. ZOVIRAX [Concomitant]
     Active Substance: ACYCLOVIR
     Indication: PROPHYLAXIS
     Route: 048
     Dates: start: 20140101, end: 20141119
  64. CETIRIZINE [Suspect]
     Active Substance: CETIRIZINE HYDROCHLORIDE
     Route: 048
     Dates: start: 20150109
  65. CETIRIZINE [Suspect]
     Active Substance: CETIRIZINE HYDROCHLORIDE
     Route: 048
     Dates: start: 20150106
  66. RANITIDINE. [Suspect]
     Active Substance: RANITIDINE
     Route: 048
  67. RANITIDINE. [Suspect]
     Active Substance: RANITIDINE
     Route: 048
  68. MEDROL [Suspect]
     Active Substance: METHYLPREDNISOLONE
     Route: 048
  69. PARACETAMOL [Suspect]
     Active Substance: ACETAMINOPHEN
     Route: 048
     Dates: start: 20141227, end: 20150102
  70. PAROXETINE. [Concomitant]
     Active Substance: PAROXETINE
     Indication: DRUG THERAPY
     Dosage: ? TAB ALTERNATING DAYS WITH 1 TAB MORNINGS
     Route: 048
     Dates: start: 20141119
  71. ZOPLICONE [Concomitant]
     Active Substance: ZOPICLONE
     Indication: PROPHYLAXIS
     Route: 048
     Dates: start: 20150104
  72. INEXIUM [Concomitant]
     Active Substance: ESOMEPRAZOLE
     Indication: DRUG THERAPY
     Route: 048
     Dates: start: 20150909
  73. ZOVIRAX [Concomitant]
     Active Substance: ACYCLOVIR
     Indication: PROPHYLAXIS
     Route: 048
     Dates: start: 20150308, end: 20150312
  74. ZOVIRAX [Concomitant]
     Active Substance: ACYCLOVIR
     Indication: PROPHYLAXIS
     Route: 048
     Dates: start: 20150606, end: 20150608

REACTIONS (1)
  - Immune thrombocytopenic purpura [Not Recovered/Not Resolved]

NARRATIVE: CASE EVENT DATE: 20151129
